FAERS Safety Report 8419285-X (Version None)
Quarter: 2012Q2

REPORT INFORMATION
  Report Type: 
  Country: None (occurrence: None)
  Receive Date: 20120607
  Receipt Date: 20120529
  Transmission Date: 20120825
  Serious: Yes (Hospitalization, Other)
  Sender: FDA-Public Use
  Company Number: US-ASTRAZENECA-2012SE17014

PATIENT
  Age: 81 Year
  Sex: Female
  Weight: 76.2 kg

DRUGS (21)
  1. SYMBICORT [Suspect]
     Dosage: 80/4.5 MCG, 2 PUFFS TWO TIMES A DAY
     Route: 055
     Dates: start: 20120213
  2. LISINOPRIL [Suspect]
     Indication: HYPERTENSION
     Route: 048
     Dates: start: 20070925
  3. CHOLECALCIFEROL [Concomitant]
     Route: 048
  4. SERTRALINE HYDROCHLORIDE [Concomitant]
     Route: 048
  5. FENOFIBRATE [Concomitant]
     Route: 048
  6. ATENOLOL [Suspect]
     Route: 048
     Dates: start: 20001205
  7. OMEGA-3 FATTY ACIDS [Concomitant]
     Route: 048
  8. PSEUDOEPHEDRINE-CODEINE-GUAIFENESIN [Concomitant]
     Dosage: 5 ML BY MOUTH THREE TIMES A DAY
     Route: 048
  9. ZETIA [Concomitant]
     Route: 048
  10. ACETAMINOPHEN [Concomitant]
     Route: 048
  11. LOPERAMIDE HCL [Concomitant]
     Route: 048
  12. DIPHENHYDRAMINE HCL [Concomitant]
     Route: 048
  13. LEVALBUTEROL HCL [Concomitant]
     Dosage: 0.63 MG/3 ML, EVERY THREE HOURS AS NEEDED
  14. LEVOTHYROXINE SODIUM [Concomitant]
     Route: 048
  15. DEXILANT [Concomitant]
     Indication: GASTROOESOPHAGEAL REFLUX DISEASE
     Route: 048
  16. DEXILANT [Concomitant]
     Route: 048
  17. PLAVIX [Concomitant]
     Route: 048
  18. ASPIRIN [Concomitant]
     Route: 048
  19. SYMBICORT [Suspect]
     Indication: CHRONIC OBSTRUCTIVE PULMONARY DISEASE
     Route: 055
     Dates: start: 20110429
  20. VITAMIN B SUPPLEMENTS [Concomitant]
  21. CALCIUM [Concomitant]
     Route: 048

REACTIONS (19)
  - ANGINA PECTORIS [None]
  - GASTROOESOPHAGEAL REFLUX DISEASE [None]
  - ARTHROPATHY [None]
  - ESSENTIAL HYPERTENSION [None]
  - SPINAL OSTEOARTHRITIS [None]
  - CHOLELITHIASIS [None]
  - DEPRESSION [None]
  - VITAMIN D DEFICIENCY [None]
  - PELVIC PAIN [None]
  - CHRONIC OBSTRUCTIVE PULMONARY DISEASE [None]
  - BRONCHOPNEUMONIA [None]
  - CORONARY ARTERY DISEASE [None]
  - RHINITIS ALLERGIC [None]
  - CIRCUMSTANCE OR INFORMATION CAPABLE OF LEADING TO MEDICATION ERROR [None]
  - BRONCHITIS CHRONIC [None]
  - HYPOTHYROIDISM [None]
  - DIVERTICULUM [None]
  - CYSTOCELE [None]
  - HYPERLIPIDAEMIA [None]
